FAERS Safety Report 8341905-9 (Version None)
Quarter: 2012Q2

REPORT INFORMATION
  Report Type: 
  Country: None (occurrence: None)
  Receive Date: 20120507
  Receipt Date: 20120427
  Transmission Date: 20120825
  Serious: Yes (Other)
  Sender: FDA-Public Use
  Company Number: JP-VERTEX PHARMACEUTICALS INC.-AE-2012-006241

PATIENT
  Age: 63 Year
  Sex: Male

DRUGS (11)
  1. RIBAVIRIN [Concomitant]
     Route: 048
     Dates: start: 20120427
  2. PEGINTERFERON ALFA-2B [Concomitant]
     Indication: HEPATITIS C
     Route: 051
     Dates: start: 20120202
  3. PEGINTERFERON ALFA-2B [Concomitant]
     Route: 051
     Dates: start: 20120405
  4. OLMESARTAN MEDOXOMIL [Concomitant]
     Route: 048
  5. SELBEX [Concomitant]
     Route: 048
  6. OMEPRAZOLE [Concomitant]
     Route: 048
  7. RIBAVIRIN [Concomitant]
     Route: 048
     Dates: start: 20120309, end: 20120321
  8. TELAVIC (TELAPREVIR) [Suspect]
     Indication: HEPATITIS C
     Route: 048
     Dates: start: 20120202, end: 20120425
  9. RIBAVIRIN [Concomitant]
     Route: 048
     Dates: start: 20120322, end: 20120426
  10. RIBAVIRIN [Concomitant]
     Indication: HEPATITIS C
     Route: 048
     Dates: start: 20120202, end: 20120308
  11. PEGINTERFERON ALFA-2B [Concomitant]
     Route: 051
     Dates: start: 20120329

REACTIONS (1)
  - WHITE BLOOD CELL COUNT DECREASED [None]
